FAERS Safety Report 23581329 (Version 3)
Quarter: 2024Q1

REPORT INFORMATION
  Report Type: Spontaneous
  Country: US (occurrence: US)
  Receive Date: 20240229
  Receipt Date: 20240322
  Transmission Date: 20240409
  Serious: No
  Sender: FDA-Public Use
  Company Number: US-PFIZER INC-PV202400026600

PATIENT
  Sex: Female

DRUGS (1)
  1. DESVENLAFAXINE SUCCINATE [Suspect]
     Active Substance: DESVENLAFAXINE SUCCINATE
     Dosage: 16 MG, 2X/DAY

REACTIONS (7)
  - Drug ineffective [Unknown]
  - Electric shock sensation [Unknown]
  - Nausea [Unknown]
  - Palpitations [Unknown]
  - Off label use [Unknown]
  - Illness [Unknown]
  - Withdrawal syndrome [Unknown]
